FAERS Safety Report 18542045 (Version 1)
Quarter: 2020Q4

REPORT INFORMATION
  Report Type: Spontaneous
  Country: US (occurrence: US)
  Receive Date: 20201124
  Receipt Date: 20201124
  Transmission Date: 20210114
  Serious: Yes (Other)
  Sender: FDA-Public Use
  Company Number: US-BRISTOL-MYERS SQUIBB COMPANY-BMS-2020-098217

PATIENT
  Sex: Female
  Weight: 64 kg

DRUGS (4)
  1. ORENCIA [Suspect]
     Active Substance: ABATACEPT
     Indication: PRODUCT USED FOR UNKNOWN INDICATION
     Dosage: UNK UNK, QWK
     Route: 065
     Dates: end: 20201017
  2. ORENCIA [Suspect]
     Active Substance: ABATACEPT
     Dosage: UNK UNK, QWK
     Route: 065
     Dates: start: 20201114
  3. ORENCIA [Suspect]
     Active Substance: ABATACEPT
     Indication: PRODUCT USED FOR UNKNOWN INDICATION
     Dosage: UNK UNK, QWK
     Route: 065
     Dates: end: 20201017
  4. ORENCIA [Suspect]
     Active Substance: ABATACEPT
     Dosage: UNK UNK, QWK
     Route: 065
     Dates: start: 20201114

REACTIONS (1)
  - Foot deformity [Unknown]
